FAERS Safety Report 6276029-8 (Version None)
Quarter: 2009Q3

REPORT INFORMATION
  Report Type: 
  Country: None (occurrence: None)
  Receive Date: 20090722
  Receipt Date: 20080422
  Transmission Date: 20100115
  Serious: No
  Sender: FDA-Public Use
  Company Number: US-ASTRAZENECA-2006UW27883

PATIENT
  Age: 554 Month
  Sex: Male
  Weight: 123 kg

DRUGS (7)
  1. SEROQUEL [Suspect]
     Indication: SCHIZOPHRENIA
     Dosage: 50 - 600 MG
     Route: 048
     Dates: start: 20030704
  2. SEROQUEL [Suspect]
     Route: 048
     Dates: start: 20031001, end: 20050101
  3. ZETIA [Concomitant]
     Indication: HYPERLIPIDAEMIA
     Route: 048
     Dates: start: 20050831
  4. LEXAPRO [Concomitant]
     Dosage: 10 - 20 MG
     Route: 048
     Dates: start: 20040122
  5. CELEXA [Concomitant]
     Dates: start: 20040430
  6. EFFEXOR XR [Concomitant]
     Dosage: 75 - 300 MG
     Dates: start: 20041111
  7. ALPRAZOLAM [Concomitant]
     Route: 048
     Dates: start: 20050525, end: 20050726

REACTIONS (4)
  - DIABETES MELLITUS [None]
  - DIABETES MELLITUS INADEQUATE CONTROL [None]
  - DYSLIPIDAEMIA [None]
  - TYPE 2 DIABETES MELLITUS [None]
